FAERS Safety Report 7454894-6 (Version None)
Quarter: 2011Q2

REPORT INFORMATION
  Report Type: 
  Country: None (occurrence: None)
  Receive Date: 20110503
  Receipt Date: 20110425
  Transmission Date: 20111010
  Serious: Yes (Hospitalization)
  Sender: FDA-Public Use
  Company Number: US-B.I. PHARMACEUTICALS,INC./RIDGEFIELD-2011-BP-11724BP

PATIENT
  Age: 90 Year
  Sex: Male

DRUGS (3)
  1. DIOVAN [Concomitant]
     Indication: HYPERTENSION
  2. PRADAXA [Suspect]
     Dosage: 300 MG
     Route: 048
     Dates: start: 20110420, end: 20110423
  3. CARVEDILOL [Concomitant]
     Indication: HYPERTENSION

REACTIONS (2)
  - HAEMOPTYSIS [None]
  - DRUG HYPERSENSITIVITY [None]
